FAERS Safety Report 21683774 (Version 1)
Quarter: 2022Q4

REPORT INFORMATION
  Report Type: Spontaneous
  Country: US (occurrence: None)
  Receive Date: 20221202
  Receipt Date: 20221202
  Transmission Date: 20230112
  Serious: No
  Sender: FDA-Public Use
  Company Number: None

PATIENT
  Sex: Male

DRUGS (2)
  1. REPATHA [Suspect]
     Active Substance: EVOLOCUMAB
     Dosage: OTHER FREQUENCY : OTHER;?
     Route: 058
  2. EPLERENONE [Concomitant]
     Active Substance: EPLERENONE

REACTIONS (2)
  - Renal injury [None]
  - Blood pressure fluctuation [None]
